FAERS Safety Report 26134840 (Version 1)
Quarter: 2025Q4

REPORT INFORMATION
  Report Type: Spontaneous
  Country: EU (occurrence: EU)
  Receive Date: 20251209
  Receipt Date: 20251209
  Transmission Date: 20260117
  Serious: Yes (Other)
  Sender: MSN LABORATORIES PRIVATE LIMITED
  Company Number: None

PATIENT

DRUGS (1)
  1. PREGABALIN [Suspect]
     Active Substance: PREGABALIN
     Indication: Hernia
     Dosage: 2X DAAGS 2 STUKS
     Route: 048
     Dates: start: 20240715, end: 20250715

REACTIONS (1)
  - Neuropathy peripheral [Recovered/Resolved]
